FAERS Safety Report 9457342 (Version 6)
Quarter: 2014Q1

REPORT INFORMATION
  Report Type: Report from Study
  Country: BR (occurrence: BR)
  Receive Date: 20130814
  Receipt Date: 20140203
  Transmission Date: 20141002
  Serious: Yes (Life-Threatening, Hospitalization, Other)
  Sender: FDA-Public Use
  Company Number: PHHY2013BR083059

PATIENT
  Age: 60 Year
  Sex: Female
  Weight: 50 kg

DRUGS (7)
  1. DIOVAN [Suspect]
     Indication: HYPERTENSION
     Dosage: 1 DF, (80 MG) A DAY IN THE MORNING, DAILY
     Route: 048
     Dates: end: 20130612
  2. DIOVAN [Suspect]
     Dosage: 3 DF, (80 MG) A DAY
  3. DIOVAN [Suspect]
     Dosage: 80 MG, UNK
     Dates: start: 20130612
  4. RIVOTRIL [Suspect]
     Indication: NERVOUSNESS
     Dosage: 0.25 DF, ()2 MG DAILY
  5. RIVOTRIL [Suspect]
     Indication: LABYRINTHITIS
  6. DONAREN [Concomitant]
     Indication: DEPRESSION
     Dosage: 1 DF, (50 MG) DAILY
     Route: 048
  7. SOMALGIN [Concomitant]
     Dosage: 1 DF, (50 MG) DAILY
     Route: 048

REACTIONS (17)
  - Loss of consciousness [Recovered/Resolved]
  - Apparent death [Unknown]
  - Panic disorder [Recovering/Resolving]
  - Memory impairment [Recovered/Resolved]
  - Fear [Unknown]
  - Blood pressure decreased [Recovering/Resolving]
  - Hypertension [Recovered/Resolved]
  - Headache [Recovered/Resolved]
  - Syncope [Recovered/Resolved]
  - Gastritis [Recovered/Resolved]
  - Depression [Recovered/Resolved]
  - Weight decreased [Recovered/Resolved]
  - Malaise [Recovering/Resolving]
  - Nervousness [Not Recovered/Not Resolved]
  - Eating disorder [Unknown]
  - Incorrect dose administered [Unknown]
  - Drug intolerance [Unknown]
